FAERS Safety Report 5073917-5 (Version None)
Quarter: 2006Q3

REPORT INFORMATION
  Report Type: 
  Country: None (occurrence: None)
  Receive Date: 20060808
  Receipt Date: 20050607
  Transmission Date: 20061208
  Serious: No
  Sender: FDA-Public Use
  Company Number: US-AMGEN-KDL137832

PATIENT
  Sex: Female

DRUGS (5)
  1. PROCRIT [Suspect]
     Indication: ANAEMIA
     Dates: start: 20050606
  2. NEURONTIN [Concomitant]
  3. DITROPAN [Concomitant]
  4. LEVOTHYROXINE SODIUM [Concomitant]
  5. MULTIVITAMIN [Concomitant]

REACTIONS (2)
  - FEELING HOT [None]
  - PAIN IN EXTREMITY [None]
